FAERS Safety Report 24429348 (Version 1)
Quarter: 2024Q4

REPORT INFORMATION
  Report Type: Spontaneous
  Country: GB (occurrence: GB)
  Receive Date: 20241011
  Receipt Date: 20241011
  Transmission Date: 20250115
  Serious: Yes (Disabling, Other)
  Sender: TEVA
  Company Number: GB-MHRA-32767567

PATIENT
  Sex: Female
  Weight: 65 kg

DRUGS (15)
  1. RANOLAZINE [Suspect]
     Active Substance: RANOLAZINE
     Indication: Chest pain
     Route: 048
     Dates: start: 20240815, end: 20240919
  2. LANSOPRAZOLE [Concomitant]
     Active Substance: LANSOPRAZOLE
     Dosage: LAST ORDERED 29/08/24. YOU MAY ORDER 1 MORE.
     Route: 065
  3. ISOSORBIDE MONONITRATE [Concomitant]
     Active Substance: ISOSORBIDE MONONITRATE
     Dosage: 10MG TABLETS (56) TABLET.AS ADVISED BY HOSPITAL. LAST ORDERED 29/08/24. YOU MAY ORDER 1 MORE.
     Route: 065
  4. IBUPROFEN [Concomitant]
     Active Substance: IBUPROFEN
     Dosage: TIME INTERVAL: 0.33333333 DAYS: 10% GEL (100) GRAM. APPLY TO THE AFFECTED AREA(S). LAST ORDERED 2...
     Route: 065
  5. RAMIPRIL [Concomitant]
     Active Substance: RAMIPRIL
     Dosage: 10MG CAPSULES (28) CAPSULE.  LAST ORDERED 29/08/24. YOU MAY ORDER 3 MORE.
     Route: 065
  6. CLOPIDOGREL [Concomitant]
     Active Substance: CLOPIDOGREL BISULFATE
     Dosage: 75MG TABLETS (28) TABLET.LAST ORDERED 29/08/24. YOU MAY ORDER 3 MORE.
     Route: 065
  7. ALENDRONIC ACID [Concomitant]
     Active Substance: ALENDRONIC ACID
     Dosage: 70MG TABLETS (4) TABLET. LAST ORDERED 29/08/24. YOU MAY ORDER 1 MORE.
     Route: 065
  8. BUPRENORPHINE [Concomitant]
     Active Substance: BUPRENORPHINE
     Dosage: 5MICROGRAMS/HOUR TRANSDERMAL PATCHES (SANDOZ LTD). APPLY, LAST ORDERED 29/08/24. YOU MAY ORDER 4 ...
     Route: 065
  9. CALCEOS [Concomitant]
     Active Substance: CALCIUM CARBONATE\CHOLECALCIFEROL
     Dosage: 500MG/400UNIT CHEWABLE TABLETS (GALEN LTD) (56) TABLET. LAST ORDERED 29/08/24. YOU MAY ORDER 1 MORE.
     Route: 065
  10. ACETAMINOPHEN [Concomitant]
     Active Substance: ACETAMINOPHEN
     Dosage: 500MG TABLETS (100) TABLET. TAKE 1 OR 2 THREE TIMES A DAY (DURING DAY). DO NOT TAKE MORE THAN 8 T...
     Route: 065
  11. BISOPROLOL [Concomitant]
     Active Substance: BISOPROLOL\BISOPROLOL FUMARATE
     Dosage: 2.5MG TABLETS (56) TABLET. LAST ORDERED 29/08/24. YOU MAY ORDER 6 MORE.
     Route: 065
  12. DAPAGLIFLOZIN [Concomitant]
     Active Substance: DAPAGLIFLOZIN
     Dosage: 10MG TABLETS (28) TABLET. LAST ORDERED 29/08/24. YOU MAY ORDER 4 MORE.
     Route: 065
  13. AMLODIPINE [Concomitant]
     Active Substance: AMLODIPINE BESYLATE
     Dosage: 5MG TABLETS (28) TABLET. LAST ORDERED 29/08/24. YOU MAY ORDER 3 MORE.
     Route: 065
  14. HYPROMELLOSES [Concomitant]
     Active Substance: HYPROMELLOSES
     Dosage: 0.3% EYE DROPS (10) ML. USE WHEN REQUIRED FOR DRY EYES. LAST ORDERED 29/08/24. YOU MAY ORDER 1 MORE.
     Route: 065
  15. PRAVASTATIN [Concomitant]
     Active Substance: PRAVASTATIN
     Dosage: 20MG TABLETS (28) TABLET.AT NIGHT. LAST ORDERED 29/08/24. YOU MAY ORDER 1 MORE.
     Route: 065

REACTIONS (4)
  - Flushing [Recovering/Resolving]
  - Confusional state [Recovering/Resolving]
  - Palpitations [Recovering/Resolving]
  - Nausea [Recovering/Resolving]

NARRATIVE: CASE EVENT DATE: 20240815
